FAERS Safety Report 6339651-6 (Version None)
Quarter: 2009Q3

REPORT INFORMATION
  Report Type: 
  Country: None (occurrence: None)
  Receive Date: 20090903
  Receipt Date: 20090821
  Transmission Date: 20100115
  Serious: Yes (Death)
  Sender: FDA-Public Use
  Company Number: CN-BRACCO-000085

PATIENT
  Age: 11 Year
  Sex: Male
  Weight: 70 kg

DRUGS (3)
  1. MULTIHANCE [Suspect]
     Indication: NUCLEAR MAGNETIC RESONANCE IMAGING
     Route: 042
     Dates: start: 20090619, end: 20090619
  2. MULTIHANCE [Suspect]
     Indication: HYPOTHALAMO-PITUITARY DISORDER
     Route: 042
     Dates: start: 20090619, end: 20090619
  3. OXYGEN [Concomitant]
     Route: 055
     Dates: start: 20090619, end: 20090619

REACTIONS (1)
  - ANAPHYLACTIC SHOCK [None]
